FAERS Safety Report 4398649-8 (Version None)
Quarter: 2004Q3

REPORT INFORMATION
  Report Type: 
  Country: None (occurrence: None)
  Receive Date: 20040715
  Receipt Date: 20040705
  Transmission Date: 20050211
  Serious: Yes (Other)
  Sender: FDA-Public Use
  Company Number: AU-BRISTOL-MYERS SQUIBB COMPANY-12631917

PATIENT
  Age: 9 Decade
  Sex: Male

DRUGS (1)
  1. MAXIPIME [Suspect]

REACTIONS (2)
  - CONFUSIONAL STATE [None]
  - TREMOR [None]
